FAERS Safety Report 9670820 (Version 1)
Quarter: 2013Q4

REPORT INFORMATION
  Report Type: Spontaneous
  Country: US (occurrence: None)
  Receive Date: 20131105
  Receipt Date: 20131105
  Transmission Date: 20140711
  Serious: Yes (Other)
  Sender: FDA-Public Use
  Company Number: None

PATIENT
  Age: 48 Year
  Sex: Female
  Weight: 69.85 kg

DRUGS (1)
  1. TUBERCULIN [Suspect]
     Indication: TUBERCULIN TEST
     Dosage: PRN AS NEEDED
     Route: 058
     Dates: start: 20131104, end: 20131104

REACTIONS (1)
  - Injection site erythema [None]
